FAERS Safety Report 8808888 (Version 1)
Quarter: 2012Q4

REPORT INFORMATION
  Report Type: 
  Country: GB (occurrence: GB)
  Receive Date: 20120926
  Receipt Date: 20120926
  Transmission Date: 20130627
  Serious: Yes (Death, Hospitalization)
  Sender: FDA-Public Use
  Company Number: GB-BRISTOL-MYERS SQUIBB COMPANY-16931628

PATIENT
  Age: 42 Year
  Sex: Male

DRUGS (1)
  1. YERVOY [Suspect]
     Dosage: 4 doses

REACTIONS (3)
  - Death [Fatal]
  - Diarrhoea [Unknown]
  - Constipation [Unknown]
